FAERS Safety Report 23938283 (Version 1)
Quarter: 2024Q2

REPORT INFORMATION
  Report Type: Spontaneous
  Country: US (occurrence: None)
  Receive Date: 20240604
  Receipt Date: 20240604
  Transmission Date: 20240715
  Serious: Yes (Hospitalization)
  Sender: FDA-Public Use
  Company Number: None

PATIENT
  Age: 63 Year
  Sex: Female
  Weight: 99 kg

DRUGS (3)
  1. METHOCARBAMOL [Suspect]
     Active Substance: METHOCARBAMOL
  2. ARMOUR THYROID [Concomitant]
     Active Substance: THYROID, PORCINE
  3. Multivitamns [Concomitant]

REACTIONS (6)
  - Eye swelling [None]
  - Eye irritation [None]
  - Visual impairment [None]
  - Eye pruritus [None]
  - Eye pain [None]
  - Swelling face [None]

NARRATIVE: CASE EVENT DATE: 20240517
